FAERS Safety Report 9877038 (Version 31)
Quarter: 2016Q1

REPORT INFORMATION
  Report Type: Report from Study
  Country: CA (occurrence: CA)
  Receive Date: 20140206
  Receipt Date: 20160204
  Transmission Date: 20160526
  Serious: Yes (Other)
  Sender: FDA-Public Use
  Company Number: CA-ROCHE-1224468

PATIENT
  Age: 54 Year
  Sex: Female
  Weight: 97 kg

DRUGS (34)
  1. SALBUTAMOL [Concomitant]
     Active Substance: ALBUTEROL
     Dosage: AS REQUIRED
     Route: 065
  2. ACLASTA [Concomitant]
     Active Substance: ZOLEDRONIC ACID
  3. ACTEMRA [Suspect]
     Active Substance: TOCILIZUMAB
     Route: 042
     Dates: start: 20140529
  4. ACTEMRA [Suspect]
     Active Substance: TOCILIZUMAB
     Route: 042
     Dates: start: 20140626, end: 20140904
  5. CYMBALTA [Concomitant]
     Active Substance: DULOXETINE HYDROCHLORIDE
     Route: 065
  6. VITAMIN B12 [Concomitant]
     Active Substance: CYANOCOBALAMIN
  7. ATORVASTATIN [Concomitant]
     Active Substance: ATORVASTATIN
  8. PREMARIN [Concomitant]
     Active Substance: ESTROGENS, CONJUGATED
     Dosage: VAGINAL CREAM
     Route: 065
  9. TARO-TERCONAZOLE [Concomitant]
  10. CRANBERRY TABLETS [Concomitant]
  11. FLUCONAZOLE. [Concomitant]
     Active Substance: FLUCONAZOLE
  12. ACTEMRA [Suspect]
     Active Substance: TOCILIZUMAB
     Route: 058
     Dates: start: 201504
  13. BISOPROLOL [Concomitant]
     Active Substance: BISOPROLOL
  14. ACTEMRA [Suspect]
     Active Substance: TOCILIZUMAB
     Dosage: LAST INFUSION OF TOCILIZUMAB ON 24/OCT/2013
     Route: 042
     Dates: start: 20130928
  15. ACTEMRA [Suspect]
     Active Substance: TOCILIZUMAB
     Route: 042
     Dates: start: 20140904, end: 20140904
  16. VENTOLIN [Suspect]
     Active Substance: ALBUTEROL SULFATE
     Indication: PRODUCT USED FOR UNKNOWN INDICATION
     Route: 065
  17. TERAZOL (CANADA) [Concomitant]
  18. ACTEMRA [Suspect]
     Active Substance: TOCILIZUMAB
     Route: 042
     Dates: start: 20140130
  19. ACTEMRA [Suspect]
     Active Substance: TOCILIZUMAB
     Indication: RHEUMATOID ARTHRITIS
     Route: 058
     Dates: start: 2011, end: 201302
  20. CYMBALTA [Concomitant]
     Active Substance: DULOXETINE HYDROCHLORIDE
     Route: 065
  21. NOVO-SEMIDE [Concomitant]
  22. DOCUSATE SODIUM. [Concomitant]
     Active Substance: DOCUSATE SODIUM
  23. D-TABS [Concomitant]
     Active Substance: CHOLECALCIFEROL
  24. MACROBID [Suspect]
     Active Substance: NITROFURANTOIN\NITROFURANTOIN MONOHYDRATE
     Indication: PRODUCT USED FOR UNKNOWN INDICATION
     Route: 065
  25. MYOFLEX (CANADA) [Concomitant]
  26. SYNTHROID [Concomitant]
     Active Substance: LEVOTHYROXINE SODIUM
  27. PREDNISONE. [Concomitant]
     Active Substance: PREDNISONE
  28. TOPIRAMATE. [Concomitant]
     Active Substance: TOPIRAMATE
     Route: 065
  29. CRESTOR [Concomitant]
     Active Substance: ROSUVASTATIN CALCIUM
  30. ACTEMRA [Suspect]
     Active Substance: TOCILIZUMAB
     Indication: RHEUMATOID ARTHRITIS
     Route: 042
     Dates: start: 20130411
  31. ACTEMRA [Suspect]
     Active Substance: TOCILIZUMAB
     Route: 058
     Dates: start: 20150122
  32. HYDERM (CANADA) [Concomitant]
  33. VOLTAREN [Concomitant]
     Active Substance: DICLOFENAC SODIUM
  34. EURO-DOCUSATE C [Concomitant]

REACTIONS (47)
  - Dyspnoea [Unknown]
  - Aortic disorder [Not Recovered/Not Resolved]
  - Osteoarthritis [Not Recovered/Not Resolved]
  - Musculoskeletal stiffness [Not Recovered/Not Resolved]
  - Heart rate increased [Not Recovered/Not Resolved]
  - Feeling hot [Unknown]
  - Constipation [Recovered/Resolved]
  - Vaginal infection [Unknown]
  - Feeling hot [Unknown]
  - Bronchitis [Unknown]
  - Loss of consciousness [Unknown]
  - Drug intolerance [Unknown]
  - Furuncle [Recovered/Resolved]
  - Tachycardia [Unknown]
  - Abdominal distension [Not Recovered/Not Resolved]
  - Fungal skin infection [Recovering/Resolving]
  - Muscle spasms [Recovered/Resolved]
  - Neoplasm [Not Recovered/Not Resolved]
  - Arthralgia [Not Recovered/Not Resolved]
  - Pruritus [Not Recovered/Not Resolved]
  - Joint stiffness [Not Recovered/Not Resolved]
  - Feeling hot [Unknown]
  - Nasal congestion [Unknown]
  - Swelling [Not Recovered/Not Resolved]
  - Thyroid disorder [Unknown]
  - Viral infection [Unknown]
  - Nasopharyngitis [Recovered/Resolved]
  - Sinusitis [Recovering/Resolving]
  - Fibromyalgia [Not Recovered/Not Resolved]
  - Fatigue [Unknown]
  - Hot flush [Not Recovered/Not Resolved]
  - Secretion discharge [Unknown]
  - Drug effect decreased [Unknown]
  - Arthralgia [Unknown]
  - Weight decreased [Unknown]
  - Fibromyalgia [Not Recovered/Not Resolved]
  - Myalgia [Not Recovered/Not Resolved]
  - Pain [Not Recovered/Not Resolved]
  - Hypersomnia [Not Recovered/Not Resolved]
  - Peripheral swelling [Not Recovered/Not Resolved]
  - Urinary tract infection [Unknown]
  - Arthralgia [Unknown]
  - Palpitations [Unknown]
  - Hypotension [Unknown]
  - Nasopharyngitis [Not Recovered/Not Resolved]
  - Erythema [Not Recovered/Not Resolved]
  - Pain [Unknown]

NARRATIVE: CASE EVENT DATE: 2013
